FAERS Safety Report 6151727-5 (Version None)
Quarter: 2009Q2

REPORT INFORMATION
  Report Type: 
  Country: None (occurrence: None)
  Receive Date: 20090410
  Receipt Date: 20090409
  Transmission Date: 20091009
  Serious: Yes (Congenital Anomaly)
  Sender: FDA-Public Use
  Company Number: A0771907A

PATIENT
  Sex: Female
  Weight: 3 kg

DRUGS (6)
  1. COMBIVIR [Suspect]
     Indication: ANTIVIRAL TREATMENT
     Dosage: 1TAB TWICE PER DAY
  2. EPIVIR [Suspect]
     Indication: ANTIVIRAL TREATMENT
     Dosage: 300MG PER DAY
     Dates: end: 20081016
  3. RETROVIR [Suspect]
     Indication: ANTIVIRAL TREATMENT
     Dosage: 328MG PER DAY
     Dates: start: 20090107, end: 20090107
  4. VIDEX [Suspect]
     Indication: ANTIVIRAL TREATMENT
     Dosage: 400MG PER DAY
  5. REYATAZ [Suspect]
     Indication: ANTIVIRAL TREATMENT
     Dosage: 200MG PER DAY
  6. TOBACCO [Concomitant]

REACTIONS (7)
  - ATRIAL SEPTAL DEFECT [None]
  - CARDIAC MURMUR [None]
  - DRUG EXPOSURE DURING PREGNANCY [None]
  - PERICARDIAL EFFUSION [None]
  - PULMONARY VALVE INCOMPETENCE [None]
  - TRICUSPID VALVE INCOMPETENCE [None]
  - VENTRICULAR SEPTAL DEFECT [None]
